FAERS Safety Report 14123262 (Version 10)
Quarter: 2020Q3

REPORT INFORMATION
  Report Type: Spontaneous
  Country: GB (occurrence: GB)
  Receive Date: 20171025
  Receipt Date: 20200924
  Transmission Date: 20201102
  Serious: Yes (Disabling, Other)
  Sender: FDA-Public Use
  Company Number: GB-AUROBINDO-AUR-APL-2017-42336

PATIENT
  Age: 83 Year
  Sex: Female

DRUGS (29)
  1. FLECAINIDE [Concomitant]
     Active Substance: FLECAINIDE
     Indication: ATRIAL FIBRILLATION
     Dosage: 50 MILLIGRAM, DAILY 50 MG TABLETS, QD, HALF TWICE DAILY
     Route: 065
     Dates: start: 20090521
  2. LANSOPRAZOLE. [Concomitant]
     Active Substance: LANSOPRAZOLE
     Indication: PRODUCT USED FOR UNKNOWN INDICATION
     Dosage: 30 MG,QD
     Route: 065
     Dates: start: 20140429
  3. METRONIDAZOLE TABLETS BP 400 MG [Suspect]
     Active Substance: METRONIDAZOLE
     Indication: DIVERTICULITIS
     Dosage: 400 MG, 3 TIMES A DAY
     Route: 065
  4. METRONIDAZOLE TABLETS BP 400 MG [Suspect]
     Active Substance: METRONIDAZOLE
     Dosage: 1200 MILLIGRAM, ONCE A DAY
     Route: 065
     Dates: start: 201704
  5. FENTANYL. [Concomitant]
     Active Substance: FENTANYL
     Indication: PRODUCT USED FOR UNKNOWN INDICATION
     Dosage: 12 UG,UNK
     Route: 062
     Dates: start: 20160413
  6. ONDANSETRON [Concomitant]
     Active Substance: ONDANSETRON
     Indication: PRODUCT USED FOR UNKNOWN INDICATION
     Dosage: 4 MILLIGRAM, 3 TIMES A DAY ONE TABLET, 4MG, THREE TIMES DAILY WHEN REQUIRED
     Route: 065
     Dates: start: 20161017
  7. FERROUS SULFATE. [Concomitant]
     Active Substance: FERROUS SULFATE
     Dosage: 200 MILLIGRAM, ONCE A DAY
     Route: 065
     Dates: start: 20161021
  8. LEVOTHYROXINE. [Concomitant]
     Active Substance: LEVOTHYROXINE
     Indication: HYPOTHYROIDISM
     Dosage: 100 MICROGRAM, DAILY
     Route: 065
     Dates: start: 20040824
  9. METRONIDAZOLE TABLETS BP 400 MG [Suspect]
     Active Substance: METRONIDAZOLE
     Dosage: 400 MG, DAILY
     Route: 065
     Dates: start: 20170222, end: 20170226
  10. PREDNISOLONE. [Concomitant]
     Active Substance: PREDNISOLONE
     Dosage: 5 MILLIGRAM, DAILY
     Route: 065
     Dates: start: 20170523
  11. FLECAINIDE [Concomitant]
     Active Substance: FLECAINIDE
     Indication: POLYMYALGIA RHEUMATICA
  12. BISOPROLOL [Concomitant]
     Active Substance: BISOPROLOL
     Indication: POLYMYALGIA RHEUMATICA
     Dosage: 2.5 MILLIGRAM, DAILY
     Route: 065
     Dates: start: 20090612
  13. METRONIDAZOLE TABLETS BP 400 MG [Suspect]
     Active Substance: METRONIDAZOLE
     Dosage: 1200 MILLIGRAM, ONCE A DAY
     Route: 065
     Dates: start: 201706
  14. RIVAROXABAN [Concomitant]
     Active Substance: RIVAROXABAN
     Indication: TRANSIENT ISCHAEMIC ATTACK
  15. COLECALCIFEROL [Concomitant]
     Active Substance: CHOLECALCIFEROL
     Indication: POLYMYALGIA RHEUMATICA
     Dosage: 400 INTERNATIONAL UNIT
     Route: 065
     Dates: start: 20161124
  16. FERROUS SULFATE. [Concomitant]
     Active Substance: FERROUS SULFATE
     Indication: ANAEMIA
     Dosage: 400 MG
     Route: 065
     Dates: start: 20161021
  17. METRONIDAZOLE TABLETS BP 400 MG [Suspect]
     Active Substance: METRONIDAZOLE
     Dosage: 400 MILLIGRAM, ONCE A DAY
     Route: 065
     Dates: start: 20170401
  18. PREDNISOLONE. [Concomitant]
     Active Substance: PREDNISOLONE
     Indication: PRODUCT USED FOR UNKNOWN INDICATION
     Dosage: 1 MILLIGRAM, DAILY
     Route: 065
     Dates: start: 20060726
  19. ACETYLSALICYLIC ACID [Concomitant]
     Active Substance: ASPIRIN
     Indication: DIVERTICULITIS
  20. LANSOPRAZOLE. [Concomitant]
     Active Substance: LANSOPRAZOLE
     Indication: PRODUCT USED FOR UNKNOWN INDICATION
     Dosage: 30 MILLIGRAM, ONCE A DAY
     Route: 065
     Dates: start: 20140429
  21. METRONIDAZOLE TABLETS BP 400 MG [Suspect]
     Active Substance: METRONIDAZOLE
     Indication: SEPSIS
     Dosage: 1200 MILLIGRAM, ONCE A DAY
     Route: 065
     Dates: start: 20170222
  22. METRONIDAZOLE TABLETS BP 400 MG [Suspect]
     Active Substance: METRONIDAZOLE
     Dosage: 400 MILLIGRAM, ONCE A DAY
     Route: 065
     Dates: start: 20170601
  23. METRONIDAZOLE TABLETS BP 400 MG [Suspect]
     Active Substance: METRONIDAZOLE
     Dosage: 1200 MILLIGRAM, ONCE A DAY
     Route: 065
     Dates: start: 201708
  24. RIVAROXABAN [Concomitant]
     Active Substance: RIVAROXABAN
     Indication: ATRIAL FLUTTER
     Dosage: 15 MG,QD
     Route: 065
     Dates: start: 20160607
  25. RIVAROXABAN [Concomitant]
     Active Substance: RIVAROXABAN
     Indication: INTERNATIONAL NORMALISED RATIO
  26. METRONIDAZOLE TABLETS BP 400 MG [Suspect]
     Active Substance: METRONIDAZOLE
     Dosage: 400 MILLIGRAM, ONCE A DAY
     Route: 065
     Dates: start: 20170801
  27. NITROFURANTOIN. [Suspect]
     Active Substance: NITROFURANTOIN
     Indication: PRODUCT USED FOR UNKNOWN INDICATION
     Dosage: UNK
     Route: 065
  28. ACETYLSALICYLIC ACID [Concomitant]
     Active Substance: ASPIRIN
     Indication: TYPE 2 DIABETES MELLITUS
     Dosage: 75 MG,QD
     Route: 065
     Dates: start: 20131030
  29. CALCIUM CARBONATE;COLECALCIFEROL [Concomitant]
     Active Substance: CALCIUM CARBONATE\CHOLECALCIFEROL
     Indication: POLYMYALGIA RHEUMATICA
     Dosage: 1 DOSAGE FORM, ONCE A DAY, COLECALCIFEROL 400 UNIT/ CALCIUM CARBONATE 1.25 G, IN THE MORNING
     Route: 065
     Dates: start: 20161124

REACTIONS (5)
  - Fine motor skill dysfunction [Recovering/Resolving]
  - Paraesthesia [Not Recovered/Not Resolved]
  - Peripheral sensorimotor neuropathy [Not Recovered/Not Resolved]
  - Hypoaesthesia [Unknown]
  - Gait disturbance [Not Recovered/Not Resolved]

NARRATIVE: CASE EVENT DATE: 2017
